FAERS Safety Report 6237769-X (Version None)
Quarter: 2009Q2

REPORT INFORMATION
  Report Type: 
  Country: None (occurrence: None)
  Receive Date: 20090618
  Receipt Date: 20090604
  Transmission Date: 20091009
  Serious: Yes (Hospitalization, Other)
  Sender: FDA-Public Use
  Company Number: 2008-177920-NL

PATIENT
  Age: 39 Year
  Sex: Female
  Weight: 45.4 kg

DRUGS (19)
  1. NUVARING [Suspect]
     Dates: start: 20030501, end: 20060728
  2. EXCEDRIN (MIGRAINE) [Concomitant]
  3. ZELNORM /USA/ [Concomitant]
  4. CONCERTA [Concomitant]
  5. TESTOSTERONE [Concomitant]
  6. TOPAMAX [Concomitant]
  7. FIORICET [Concomitant]
  8. VERAPAMIL [Concomitant]
  9. SINGULAIR ^DIECKMANN^ [Concomitant]
  10. NASONEX [Concomitant]
  11. ADVAIR HFA [Concomitant]
  12. CLARITIN [Concomitant]
  13. ZYRTEC [Concomitant]
  14. ALLEGRA [Concomitant]
  15. CLARINEX /USA/ [Concomitant]
  16. LORATADINE [Concomitant]
  17. ENTEX ER [Concomitant]
  18. MAXAIR [Concomitant]
  19. CIPRO [Concomitant]

REACTIONS (12)
  - ABDOMINAL PAIN [None]
  - ACUTE SINUSITIS [None]
  - ATELECTASIS [None]
  - CHRONIC OBSTRUCTIVE PULMONARY DISEASE [None]
  - CONSTIPATION [None]
  - DEEP VEIN THROMBOSIS [None]
  - DYSPNOEA EXERTIONAL [None]
  - HYPERVOLAEMIA [None]
  - MIGRAINE [None]
  - PULMONARY EMBOLISM [None]
  - SEASONAL ALLERGY [None]
  - URINARY TRACT INFECTION [None]
